FAERS Safety Report 24390908 (Version 2)
Quarter: 2024Q4

REPORT INFORMATION
  Report Type: Spontaneous
  Country: DK (occurrence: DK)
  Receive Date: 20241003
  Receipt Date: 20241030
  Transmission Date: 20250115
  Serious: No
  Sender: JOHNSON AND JOHNSON
  Company Number: DK-JNJFOC-20240947048

PATIENT

DRUGS (1)
  1. TREMFYA [Suspect]
     Active Substance: GUSELKUMAB
     Indication: Product used for unknown indication
     Dosage: STRENGTH: UNKNOWN
     Route: 065

REACTIONS (1)
  - Device issue [Unknown]
